FAERS Safety Report 13368523 (Version 1)
Quarter: 2017Q1

REPORT INFORMATION
  Report Type: Spontaneous
  Country: BR (occurrence: BR)
  Receive Date: 20170324
  Receipt Date: 20170324
  Transmission Date: 20170429
  Serious: Yes (Life-Threatening, Disabling)
  Sender: FDA-Public Use
  Company Number: BR-FRESENIUS KABI-FK201702276

PATIENT
  Age: 44 Year
  Sex: Male
  Weight: 86 kg

DRUGS (4)
  1. SODIUM CHLORIDE 0.9% SOLUTION FOR INFUSION [Suspect]
     Active Substance: SODIUM CHLORIDE
     Indication: CHEMOTHERAPY
     Route: 065
     Dates: start: 20170315, end: 20170315
  2. SODIUM CHLORIDE 0.9% SOLUTION FOR INFUSION [Suspect]
     Active Substance: SODIUM CHLORIDE
     Route: 065
     Dates: start: 20170315
  3. DAUNOBLASTIN [Concomitant]
     Active Substance: DAUNORUBICIN HYDROCHLORIDE
     Dates: start: 20170315
  4. CYTARABINE. [Concomitant]
     Active Substance: CYTARABINE
     Dates: start: 20170315, end: 20170315

REACTIONS (4)
  - Hyperhidrosis [Unknown]
  - Dry mouth [Unknown]
  - Tachycardia [Unknown]
  - Tremor [Unknown]

NARRATIVE: CASE EVENT DATE: 20170315
